FAERS Safety Report 21888392 (Version 1)
Quarter: 2023Q1

REPORT INFORMATION
  Report Type: Report from Study
  Country: US (occurrence: US)
  Receive Date: 20230120
  Receipt Date: 20230120
  Transmission Date: 20230417
  Serious: No
  Sender: FDA-Public Use
  Company Number: US-ABBVIE-4245402

PATIENT
  Sex: Female

DRUGS (1)
  1. HUMIRA [Suspect]
     Active Substance: ADALIMUMAB
     Indication: Hidradenitis
     Dosage: 2022-01-01 WAS THE LAB AND EVENT DATE.
     Route: 058
     Dates: start: 20220713

REACTIONS (1)
  - Tachycardia [Not Recovered/Not Resolved]
